FAERS Safety Report 6512162-0 (Version None)
Quarter: 2009Q4

REPORT INFORMATION
  Report Type: 
  Country: None (occurrence: None)
  Receive Date: 20091222
  Receipt Date: 20090629
  Transmission Date: 20100525
  Serious: No
  Sender: FDA-Public Use
  Company Number: US-ASTRAZENECA-2009UW15121

PATIENT
  Age: 61 Year
  Sex: Male
  Weight: 76.7 kg

DRUGS (3)
  1. CRESTOR [Suspect]
     Indication: BLOOD CHOLESTEROL INCREASED
     Route: 048
     Dates: start: 20090101, end: 20090612
  2. ALLOPURINOL [Concomitant]
     Indication: GOUT
  3. SYNTHROID [Concomitant]
     Indication: THYROID DISORDER

REACTIONS (5)
  - BLOOD CREATINE PHOSPHOKINASE INCREASED [None]
  - CHEST PAIN [None]
  - LIGAMENT DISORDER [None]
  - MUSCLE SPASMS [None]
  - MYALGIA [None]
